FAERS Safety Report 4387132-1 (Version None)
Quarter: 2004Q2

REPORT INFORMATION
  Report Type: 
  Country: None (occurrence: None)
  Receive Date: 20040630
  Receipt Date: 20040309
  Transmission Date: 20050107
  Serious: Yes (Life-Threatening, Hospitalization, Other)
  Sender: FDA-Public Use
  Company Number: US-GLAXOSMITHKLINE-A0502425A

PATIENT
  Age: 71 Year
  Sex: Female
  Weight: 93.2 kg

DRUGS (2)
  1. ADVAIR HFA [Suspect]
     Indication: DRUG USE FOR UNKNOWN INDICATION
     Dosage: 1PUFF SINGLE DOSE
     Route: 055
     Dates: start: 20040301, end: 20040304
  2. LOTREL [Suspect]
     Route: 048
     Dates: start: 20031013, end: 20040304

REACTIONS (3)
  - DYSPNOEA [None]
  - LOCALISED OEDEMA [None]
  - OROPHARYNGEAL SWELLING [None]
